FAERS Safety Report 26136661 (Version 1)
Quarter: 2025Q4

REPORT INFORMATION
  Report Type: Spontaneous
  Country: US (occurrence: None)
  Receive Date: 20251209
  Receipt Date: 20251209
  Transmission Date: 20260118
  Serious: No
  Sender: FDA-CTU
  Company Number: None

PATIENT

DRUGS (1)
  1. NUCALA [Suspect]
     Active Substance: MEPOLIZUMAB

REACTIONS (6)
  - Treatment noncompliance [None]
  - Back pain [None]
  - Stomatitis [None]
  - Throat tightness [None]
  - Swollen tongue [None]
  - Tongue erythema [None]
